FAERS Safety Report 9427816 (Version 1)
Quarter: 2013Q3

REPORT INFORMATION
  Report Type: Spontaneous
  Country: US (occurrence: None)
  Receive Date: 20130729
  Receipt Date: 20130729
  Transmission Date: 20140515
  Serious: Yes (Other)
  Sender: FDA-Public Use
  Company Number: None

PATIENT
  Age: 89 Year
  Sex: Female
  Weight: 74.84 kg

DRUGS (8)
  1. WARFARIN [Suspect]
     Indication: ANTICOAGULANT THERAPY
     Dosage: 5MG?1/2 TAB ONE DAY  1 TAB EVERY OTHER DAY?BY MOUTH
     Route: 048
     Dates: start: 20130102, end: 20130711
  2. WARFARIN [Suspect]
     Indication: HYPERTENSION
     Dosage: 5MG?1/2 TAB ONE DAY  1 TAB EVERY OTHER DAY?BY MOUTH
     Route: 048
     Dates: start: 20130102, end: 20130711
  3. WARFARIN [Suspect]
     Indication: CARDIAC DISORDER
     Dosage: 5MG?1/2 TAB ONE DAY  1 TAB EVERY OTHER DAY?BY MOUTH
     Route: 048
     Dates: start: 20130102, end: 20130711
  4. DILTIAZEM [Concomitant]
  5. METOPROOL [Concomitant]
  6. ALL VITAMINS [Concomitant]
  7. EXTRA POTASSIUM [Concomitant]
  8. COQ10 [Concomitant]

REACTIONS (8)
  - Decreased appetite [None]
  - Hunger [None]
  - Parosmia [None]
  - Dysgeusia [None]
  - Abdominal discomfort [None]
  - Retching [None]
  - Vomiting [None]
  - Product substitution issue [None]
